FAERS Safety Report 9803141 (Version 1)
Quarter: 2014Q1

REPORT INFORMATION
  Report Type: Spontaneous
  Country: TR (occurrence: TR)
  Receive Date: 20140108
  Receipt Date: 20140108
  Transmission Date: 20141002
  Serious: Yes (Other)
  Sender: FDA-Public Use
  Company Number: PHHY2013TR154881

PATIENT
  Age: 29 Year
  Sex: Female

DRUGS (1)
  1. CLOZAPINE [Suspect]
     Indication: SCHIZOPHRENIA
     Dosage: 300 MG PER DAY

REACTIONS (2)
  - Hyperprolactinaemia [Recovering/Resolving]
  - Galactorrhoea [Recovered/Resolved]
